FAERS Safety Report 9417131 (Version 1)
Quarter: 2013Q3

REPORT INFORMATION
  Report Type: Spontaneous
  Country: US (occurrence: US)
  Receive Date: 20130724
  Receipt Date: 20130724
  Transmission Date: 20140515
  Serious: No
  Sender: FDA-Public Use
  Company Number: US-BAYER-2013-088838

PATIENT
  Age: 86 Year
  Sex: Male
  Weight: 63.49 kg

DRUGS (5)
  1. ONE A DAY MEN^S HEALTH FORMULA [Suspect]
     Dosage: 1 DF, QD WITH FOOD
     Route: 048
     Dates: start: 201307, end: 20130717
  2. VANQUISH [Suspect]
     Indication: ARTHRITIS
     Dosage: 2 DF, QD
     Route: 048
     Dates: start: 201306
  3. ALEVE TABLET [Suspect]
     Indication: ARTHRITIS
     Dosage: 2 DF, QD WITH FOOD
     Route: 048
     Dates: start: 201307
  4. FISH OIL [Concomitant]
  5. CORTIZONE [Concomitant]

REACTIONS (4)
  - Foreign body [Recovered/Resolved]
  - Incorrect drug administration duration [None]
  - Incorrect drug administration duration [None]
  - Expired drug administered [None]
